FAERS Safety Report 7317951-0 (Version None)
Quarter: 2011Q1

REPORT INFORMATION
  Report Type: 
  Country: None (occurrence: None)
  Receive Date: 20110226
  Receipt Date: 20110131
  Transmission Date: 20110831
  Serious: No
  Sender: FDA-Public Use
  Company Number: US-B.I. PHARMACEUTICALS,INC./RIDGEFIELD-2011-BP-03113BP

PATIENT
  Age: 76 Year
  Sex: Male

DRUGS (10)
  1. PRADAXA [Suspect]
     Indication: CEREBROVASCULAR ACCIDENT PROPHYLAXIS
  2. PRADAXA [Suspect]
     Indication: ATRIAL FIBRILLATION
     Dosage: 300 MG
     Route: 048
     Dates: start: 20101215
  3. SPIRONOLACTONE [Concomitant]
  4. LOTREL [Concomitant]
  5. ALLEGRA [Concomitant]
  6. ACIPHEX [Concomitant]
  7. FLONASE [Concomitant]
  8. ATENELOL [Concomitant]
  9. FLECAINIDE ACETATE [Concomitant]
  10. CALONAZIPAM [Concomitant]

REACTIONS (3)
  - ANAL PRURITUS [None]
  - RASH [None]
  - FAECES DISCOLOURED [None]
